FAERS Safety Report 23919893 (Version 1)
Quarter: 2024Q2

REPORT INFORMATION
  Report Type: Spontaneous
  Country: US (occurrence: None)
  Receive Date: 20240529
  Receipt Date: 20240529
  Transmission Date: 20240716
  Serious: Yes (Hospitalization)
  Sender: FDA-Public Use
  Company Number: None

PATIENT
  Sex: Female

DRUGS (1)
  1. TACROLIMUS [Suspect]
     Active Substance: TACROLIMUS
     Indication: Liver transplant
     Dosage: OTHER QUANTITY : 1MG AM 1.5 MG PM ;?FREQUENCY : TWICE A DAY;?
     Route: 048
     Dates: start: 202308

REACTIONS (2)
  - Nausea [None]
  - Vomiting [None]
